FAERS Safety Report 16160338 (Version 1)
Quarter: 2019Q2

REPORT INFORMATION
  Report Type: Report from Study
  Country: US (occurrence: US)
  Receive Date: 20190404
  Receipt Date: 20190404
  Transmission Date: 20190711
  Serious: Yes (Other)
  Sender: FDA-Public Use
  Company Number: US-UCBSA-2019013979

PATIENT
  Age: 69 Year
  Sex: Male

DRUGS (1)
  1. LEVETIRACETAM. [Suspect]
     Active Substance: LEVETIRACETAM
     Indication: PARTIAL SEIZURES
     Dosage: 750MG 4TABS DAILY
     Dates: start: 20170119

REACTIONS (1)
  - Hip surgery [Not Recovered/Not Resolved]

NARRATIVE: CASE EVENT DATE: 20190325
